FAERS Safety Report 7183481-2 (Version None)
Quarter: 2010Q4

REPORT INFORMATION
  Report Type: 
  Country: None (occurrence: None)
  Receive Date: 20101222
  Receipt Date: 20101207
  Transmission Date: 20110411
  Serious: No
  Sender: FDA-Public Use
  Company Number: PHHY2010BR82097

PATIENT
  Sex: Female

DRUGS (2)
  1. FEMARA [Suspect]
     Indication: BREAST CANCER
     Dosage: 2.5 MG, 1 DF DAILY
     Route: 048
     Dates: start: 20101101
  2. NOVOFER [Concomitant]
     Indication: ANAEMIA
     Dosage: 126 MG
     Route: 048

REACTIONS (2)
  - CRYING [None]
  - MUSCULOSKELETAL PAIN [None]
